FAERS Safety Report 12421173 (Version 1)
Quarter: 2016Q2

REPORT INFORMATION
  Report Type: Spontaneous
  Country: FR (occurrence: FR)
  Receive Date: 20160531
  Receipt Date: 20160531
  Transmission Date: 20160815
  Serious: Yes (Hospitalization)
  Sender: FDA-Public Use
  Company Number: FR-JNJFOC-20160526523

PATIENT
  Age: 92 Year
  Sex: Female

DRUGS (7)
  1. BISOPROLOL [Concomitant]
     Active Substance: BISOPROLOL
     Route: 065
  2. RISPERDAL [Suspect]
     Active Substance: RISPERIDONE
     Indication: HALLUCINATION
     Route: 048
     Dates: start: 201510, end: 20151026
  3. INEXIUM [Concomitant]
     Active Substance: ESOMEPRAZOLE
     Route: 065
  4. EXELON [Concomitant]
     Active Substance: RIVASTIGMINE TARTRATE
     Route: 065
  5. ASPIRINE [Concomitant]
     Active Substance: ASPIRIN
     Route: 065
  6. CODOLIPRANE [Concomitant]
     Active Substance: ACETAMINOPHEN\CODEINE PHOSPHATE
     Route: 065
  7. PROZAC [Suspect]
     Active Substance: FLUOXETINE HYDROCHLORIDE
     Indication: HALLUCINATION
     Route: 048
     Dates: start: 201510, end: 20151102

REACTIONS (4)
  - Somnolence [Recovered/Resolved]
  - Psychomotor skills impaired [Unknown]
  - Dyspnoea [Unknown]
  - Cystitis [Unknown]

NARRATIVE: CASE EVENT DATE: 20151022
